FAERS Safety Report 15121832 (Version 3)
Quarter: 2018Q4

REPORT INFORMATION
  Report Type: Spontaneous
  Country: JP (occurrence: JP)
  Receive Date: 20180709
  Receipt Date: 20181105
  Transmission Date: 20190204
  Serious: Yes (Death, Hospitalization, Other)
  Sender: FDA-Public Use
  Company Number: JP-PFIZER INC-2018268307

PATIENT
  Age: 50 Year
  Sex: Female
  Weight: 41.5 kg

DRUGS (6)
  1. FUROSEMIDE. [Concomitant]
     Active Substance: FUROSEMIDE
     Indication: OEDEMA
     Dosage: 20 MG, 1X/DAY
     Route: 048
     Dates: start: 20180613, end: 20180701
  2. FASLODEX [Concomitant]
     Active Substance: FULVESTRANT
     Indication: BREAST CANCER RECURRENT
     Dosage: 500 MG, 1X/DAY
     Route: 030
     Dates: start: 20180613, end: 20180627
  3. MS CONTIN [Concomitant]
     Active Substance: MORPHINE SULFATE
     Indication: ANALGESIC THERAPY
     Dosage: 20 MG, 2X/DAY
     Route: 048
     Dates: start: 20170606, end: 20180701
  4. FUROSEMIDE. [Concomitant]
     Active Substance: FUROSEMIDE
     Indication: ASCITES
  5. IBRANCE [Suspect]
     Active Substance: PALBOCICLIB
     Indication: BREAST CANCER RECURRENT
     Dosage: 125 MG, 1X/DAY
     Route: 048
     Dates: start: 20180613, end: 20180627
  6. LAFUTIDINE [Concomitant]
     Active Substance: LAFUTIDINE
     Indication: NEUROPATHY PERIPHERAL
     Dosage: 10 MG, 1X/DAY
     Route: 048
     Dates: start: 20170606, end: 20180701

REACTIONS (7)
  - Neoplasm progression [Fatal]
  - White blood cell count decreased [Unknown]
  - Ascites [Fatal]
  - Platelet count decreased [Unknown]
  - Hepatic failure [Unknown]
  - Disseminated intravascular coagulation [Fatal]
  - Condition aggravated [Fatal]

NARRATIVE: CASE EVENT DATE: 20180627
